FAERS Safety Report 18581099 (Version 1)
Quarter: 2020Q4

REPORT INFORMATION
  Report Type: Report from Study
  Country: US (occurrence: US)
  Receive Date: 20201204
  Receipt Date: 20201204
  Transmission Date: 20210114
  Serious: Yes (Other)
  Sender: FDA-Public Use
  Company Number: US-TAKEDA-2020TUS047601

PATIENT
  Age: 64 Year
  Sex: Female

DRUGS (1)
  1. VEDOLIZUMAB [Suspect]
     Active Substance: VEDOLIZUMAB
     Indication: CROHN^S DISEASE
     Dosage: 300 MILLIGRAM
     Route: 042
     Dates: start: 20201019

REACTIONS (8)
  - Asthenia [Unknown]
  - Colostomy [Unknown]
  - Decreased appetite [Unknown]
  - Thirst [Unknown]
  - Lacrimation increased [Unknown]
  - Stoma site erythema [Recovering/Resolving]
  - Fatigue [Unknown]
  - Feeling abnormal [Unknown]

NARRATIVE: CASE EVENT DATE: 20201130
